FAERS Safety Report 9525108 (Version 1)
Quarter: 2013Q1

REPORT INFORMATION
  Report Type: Spontaneous
  Country: US (occurrence: None)
  Receive Date: 20130314
  Receipt Date: 20130314
  Transmission Date: 20140127
  Serious: No
  Sender: FDA-Public Use
  Company Number: 1211USA010538

PATIENT
  Sex: Female
  Weight: 54.9 kg

DRUGS (4)
  1. VICTRELIS (BOCEPREVIR) CAPSULE, 200MG [Suspect]
     Dosage: TAKE 4 CAPSULES BY MOUTH THREE TIMES A DAY, ORAL
     Route: 048
  2. RIBAVIRIN (RIBAVIRIN) CAPSULE, 200MG [Suspect]
  3. PEGASYS (PEGINTERFERON ALFA-2A) [Suspect]
     Dosage: 180 MCG/M
  4. LUNESTA (ESZOPICTONE) TABLET,  1 MG [Concomitant]

REACTIONS (3)
  - Burning sensation [None]
  - Weight decreased [None]
  - Haemoglobin decreased [None]
